FAERS Safety Report 6263987-0 (Version None)
Quarter: 2009Q3

REPORT INFORMATION
  Report Type: 
  Country: None (occurrence: None)
  Receive Date: 20090710
  Receipt Date: 20090708
  Transmission Date: 20100115
  Serious: Yes (Death, Other)
  Sender: FDA-Public Use
  Company Number: US-ASTRAZENECA-2009UW13015

PATIENT
  Age: 32 Year
  Sex: Male
  Weight: 154.2 kg

DRUGS (8)
  1. SEROQUEL [Suspect]
     Indication: BIPOLAR DISORDER
     Route: 048
     Dates: start: 20020101, end: 20090101
  2. SEROQUEL [Suspect]
     Indication: INSOMNIA
     Route: 048
     Dates: start: 20020101, end: 20090101
  3. GEODON [Concomitant]
  4. HALDOL [Concomitant]
     Dates: start: 19950101, end: 20000101
  5. RISPERDAL [Concomitant]
     Dates: start: 20020101
  6. THORAZINE [Concomitant]
     Dates: start: 19950101, end: 20000101
  7. TRILAFON [Concomitant]
  8. ZYPREXA [Concomitant]
     Dates: start: 20020101

REACTIONS (7)
  - BLOOD TRIGLYCERIDES INCREASED [None]
  - DEATH [None]
  - DIABETIC COMA [None]
  - DIABETIC KETOACIDOSIS [None]
  - OBESITY [None]
  - PANCREATITIS [None]
  - TYPE 2 DIABETES MELLITUS [None]
